FAERS Safety Report 21199785 (Version 1)
Quarter: 2022Q3

REPORT INFORMATION
  Report Type: Spontaneous
  Country: US (occurrence: US)
  Receive Date: 20220811
  Receipt Date: 20220811
  Transmission Date: 20221027
  Serious: No
  Sender: FDA-Public Use
  Company Number: US-TAKEDA-2022TUS053692

PATIENT
  Age: 37 Year
  Sex: Female

DRUGS (1)
  1. CUVITRU [Suspect]
     Active Substance: HUMAN IMMUNOGLOBULIN G
     Indication: Product used for unknown indication
     Dosage: 2 GRAM, 1/WEEK
     Route: 065
     Dates: start: 20220803

REACTIONS (2)
  - Lung disorder [Recovered/Resolved]
  - Renal pain [Recovered/Resolved]
